FAERS Safety Report 6405458-4 (Version None)
Quarter: 2009Q4

REPORT INFORMATION
  Report Type: 
  Country: None (occurrence: None)
  Receive Date: 20091016
  Receipt Date: 20091016
  Transmission Date: 20100525
  Serious: Yes (Other)
  Sender: FDA-Public Use
  Company Number: None

PATIENT
  Sex: Male
  Weight: 85.7298 kg

DRUGS (5)
  1. VALPROIC ACID [Suspect]
     Indication: BIPOLAR DISORDER
     Dosage: 250 MG 3 TIMES A DAY
     Dates: start: 20090301
  2. VALPROIC ACID [Suspect]
     Indication: BIPOLAR DISORDER
     Dosage: 250 MG 3 TIMES A DAY
     Dates: start: 20090401
  3. VALPROIC ACID [Suspect]
     Indication: BIPOLAR DISORDER
     Dosage: 250 MG 3 TIMES A DAY
     Dates: start: 20090501
  4. VALPROIC ACID [Suspect]
     Indication: BIPOLAR DISORDER
     Dosage: 250 MG 3 TIMES A DAY
     Dates: start: 20090602
  5. PAXIL [Suspect]
     Indication: DEPRESSION
     Dosage: 20 MG 1 A DAY SUMMER OF 09

REACTIONS (4)
  - ABNORMAL FAECES [None]
  - DIARRHOEA [None]
  - ERECTILE DYSFUNCTION [None]
  - FLATULENCE [None]
